FAERS Safety Report 15989744 (Version 2)
Quarter: 2019Q2

REPORT INFORMATION
  Report Type: Spontaneous
  Country: JP (occurrence: JP)
  Receive Date: 20190221
  Receipt Date: 20190510
  Transmission Date: 20190711
  Serious: Yes (Other)
  Sender: FDA-Public Use
  Company Number: PHJP2019JP002085

PATIENT
  Sex: Female
  Weight: 51.4 kg

DRUGS (5)
  1. TASIGNA [Suspect]
     Active Substance: NILOTINIB
     Indication: CHRONIC MYELOID LEUKAEMIA
     Dosage: 150 MG, UNK
     Route: 048
  2. TASIGNA [Suspect]
     Active Substance: NILOTINIB
     Dosage: 300 MG, UNK
     Route: 048
  3. PREDNISOLONE. [Concomitant]
     Active Substance: PREDNISOLONE
     Dosage: 20 MG, UNK
     Route: 065
  4. PREDNISOLONE. [Concomitant]
     Active Substance: PREDNISOLONE
     Indication: DERMATOMYOSITIS
     Dosage: 5 MG, UNK
     Route: 065
  5. PREDNISOLONE. [Concomitant]
     Active Substance: PREDNISOLONE
     Dosage: 30 MG, UNK
     Route: 065

REACTIONS (2)
  - Concomitant disease aggravated [Recovering/Resolving]
  - Rash [Recovering/Resolving]
